FAERS Safety Report 6530284-5 (Version None)
Quarter: 2010Q1

REPORT INFORMATION
  Report Type: 
  Country: None (occurrence: None)
  Receive Date: 20100107
  Receipt Date: 20100101
  Transmission Date: 20100710
  Serious: Yes (Death)
  Sender: FDA-Public Use
  Company Number: US-ROCHE-677883

PATIENT

DRUGS (2)
  1. BEVACIZUMAB [Suspect]
     Indication: BREAST CANCER
     Dosage: FREQUENY: OVER A PERIOD OF 30-90 MINUTES ON DAY 1 AND 15. CYCLE = 28 DAYS
     Route: 042
     Dates: start: 20090826
  2. PACLITAXEL [Suspect]
     Indication: BREAST CANCER
     Dosage: FREQ: OVER 1 HOUR ON DAYS 1, 8 AND 15. CYCLE 4
     Route: 042
     Dates: start: 20090826

REACTIONS (1)
  - MYOCARDIAL ISCHAEMIA [None]
